FAERS Safety Report 7935608-X (Version None)
Quarter: 2011Q4

REPORT INFORMATION
  Report Type: 
  Country: None (occurrence: None)
  Receive Date: 20111123
  Receipt Date: 20111111
  Transmission Date: 20120403
  Serious: Yes (Other)
  Sender: FDA-Public Use
  Company Number: US-ELI_LILLY_AND_COMPANY-US201110004475

PATIENT
  Sex: Female
  Weight: 48.98 kg

DRUGS (5)
  1. BIOTIN [Concomitant]
  2. BUSPAR [Concomitant]
  3. CONTRACEPTIVES [Concomitant]
  4. STRATTERA [Suspect]
     Indication: ATTENTION DEFICIT/HYPERACTIVITY DISORDER
     Dosage: 18 MG, EACH MORNING
     Route: 048
     Dates: start: 20110902
  5. CITALOPRAM HYDROBROMIDE [Concomitant]
     Dosage: UNK

REACTIONS (3)
  - INTENTIONAL SELF-INJURY [None]
  - IRRITABILITY [None]
  - SUICIDAL IDEATION [None]
